FAERS Safety Report 6599542-2 (Version None)
Quarter: 2010Q1

REPORT INFORMATION
  Report Type: 
  Country: None (occurrence: None)
  Receive Date: 20100224
  Receipt Date: 20100217
  Transmission Date: 20100710
  Serious: Yes (Hospitalization)
  Sender: FDA-Public Use
  Company Number: HK-ROCHE-686281

PATIENT
  Sex: Female
  Weight: 45.6 kg

DRUGS (13)
  1. BEVACIZUMAB [Suspect]
     Indication: BREAST CANCER
     Dosage: DATE OF LAST DOSE PRIOR TO SAE: 07 JANUARY 2010, FORM: VIAL, DOSE LEVEL: 15 MG/KG
     Route: 042
     Dates: start: 20091211
  2. TRASTUZUMAB [Suspect]
     Indication: BREAST CANCER
     Dosage: LOADING DOSE
     Route: 042
     Dates: start: 20091211
  3. TRASTUZUMAB [Suspect]
     Dosage: MAINTENANCE DOSE.  LAST DOSE PRIOR TO SAE: 28 JANUARY 2010, FORM: VIAL, DOSE LEVEL: 8 MG/KG
     Route: 042
  4. DOCETAXEL [Suspect]
     Indication: BREAST CANCER
     Dosage: LAST DOSE PRIOR TO SAE: 28 JANUARY 2010, FORM: VIALS, DOSE LEVEL:75 MG/M2
     Route: 042
     Dates: start: 20091211
  5. CARBOPLATIN [Suspect]
     Indication: BREAST CANCER
     Dosage: DOSE REPORTED: 6 AUC , LAST DOSE PRIOR TO SAE: 28 JANUARY 2010, DOSE LEVEL: 6 AUC, FORM:VIAL
     Route: 042
     Dates: start: 20091211
  6. INDAPAMIDE [Concomitant]
     Dates: start: 20091208, end: 20091217
  7. DEXAMETHASONE [Concomitant]
     Dates: start: 20091210, end: 20091212
  8. FILGRASTIM [Concomitant]
     Dosage: TOTAL DAILY DOSE REPORTED: 30 MU, DRUG REPORTED: FILGRASTIM (G-CSF)
     Dates: start: 20091215, end: 20091220
  9. FILGRASTIM [Concomitant]
     Dosage: TOTAL DAILY DOSE REPORTED: 30 MU, DRUG REPORTED: FILGRASTIM (G-CSF)
     Dates: start: 20100201, end: 20100207
  10. METOCLOPRAMIDE HCL [Concomitant]
     Dates: start: 20091211
  11. ATENOLOL [Concomitant]
     Dates: start: 19970101, end: 20091202
  12. ATENOLOL [Concomitant]
     Dates: start: 20091204, end: 20091208
  13. ATENOLOL [Concomitant]
     Dates: start: 20091230

REACTIONS (1)
  - MYOCARDIAL ISCHAEMIA [None]
